FAERS Safety Report 25578520 (Version 1)
Quarter: 2025Q3

REPORT INFORMATION
  Report Type: Spontaneous
  Country: US (occurrence: None)
  Receive Date: 20250717
  Receipt Date: 20250717
  Transmission Date: 20251020
  Serious: No
  Sender: FDA-CTU
  Company Number: None

PATIENT
  Age: 44 Year
  Sex: Female
  Weight: 107.55 kg

DRUGS (14)
  1. TEZSPIRE [Suspect]
     Active Substance: TEZEPELUMAB-EKKO
     Indication: Asthma
     Dosage: OTHER FREQUENCY : MONTHLY;?
     Route: 058
     Dates: start: 20250205
  2. ALBUTEROL\IPRATROPIUM [Concomitant]
     Active Substance: ALBUTEROL\IPRATROPIUM
     Dates: start: 20250307
  3. ALBUTEROL SULFATE [Concomitant]
     Active Substance: ALBUTEROL SULFATE
     Dates: start: 20250307
  4. CEFUROXIME [Concomitant]
     Active Substance: CEFUROXIME
     Dates: start: 20250307
  5. epinephrine 0.3mg/ml [Concomitant]
     Dates: start: 20250307
  6. airsupra 90-80mcg/act [Concomitant]
     Dates: start: 20250307
  7. RYALTRIS 665-25MCG/ACT [Concomitant]
     Dates: start: 20250307
  8. ADVAIR 250-50MCG/ACT [Concomitant]
     Dates: start: 20250307
  9. FLUTICASONE PROPIONATE [Concomitant]
     Active Substance: FLUTICASONE PROPIONATE
     Dates: start: 20250307
  10. ACETAMINOPHEN\OXYCODONE HYDROCHLORIDE [Concomitant]
     Active Substance: ACETAMINOPHEN\OXYCODONE HYDROCHLORIDE
     Dates: start: 20250306
  11. METHOCARBAMOL [Concomitant]
     Active Substance: METHOCARBAMOL
     Dates: start: 20250306
  12. FLUCONAZOLE [Concomitant]
     Active Substance: FLUCONAZOLE
     Dates: start: 20250306
  13. SULFAMETH-TMP 800-160MG [Concomitant]
     Dates: start: 20250306
  14. METFORMIN [Concomitant]
     Active Substance: METFORMIN HYDROCHLORIDE
     Dates: start: 20250306

REACTIONS (2)
  - Weight increased [None]
  - Dyspnoea [None]

NARRATIVE: CASE EVENT DATE: 20250717
